FAERS Safety Report 5940662-0 (Version None)
Quarter: 2008Q4

REPORT INFORMATION
  Report Type: 
  Country: None (occurrence: None)
  Receive Date: 20081103
  Receipt Date: 20081103
  Transmission Date: 20090506
  Serious: Yes (Hospitalization)
  Sender: FDA-Public Use
  Company Number: None

PATIENT
  Sex: Female
  Weight: 51.2565 kg

DRUGS (2)
  1. LISINOPRIL [Suspect]
     Indication: BLOOD PRESSURE INCREASED
     Dosage: 1 TAB BID
     Dates: start: 20080829, end: 20081011
  2. PREDNISONE [Suspect]
     Indication: DRUG THERAPY
     Dosage: 3 TABS IN ER

REACTIONS (2)
  - ANAPHYLACTOID REACTION [None]
  - BLOOD GLUCOSE INCREASED [None]
